FAERS Safety Report 21189203 (Version 2)
Quarter: 2022Q3

REPORT INFORMATION
  Report Type: Other
  Country: AR (occurrence: None)
  Receive Date: 20220809
  Receipt Date: 20220825
  Transmission Date: 20221026
  Serious: No
  Sender: FDA-Public Use
  Company Number: AR-ROCHE-3155878

PATIENT
  Age: 65 Year
  Sex: Female

DRUGS (6)
  1. OCREVUS [Suspect]
     Active Substance: OCRELIZUMAB
     Indication: Primary progressive multiple sclerosis
     Route: 042
     Dates: start: 202105
  2. METHYLPREDNISOLONE [Concomitant]
     Active Substance: METHYLPREDNISOLONE
     Dosage: FREQUENCY WAS NOT REPORTED
  3. LEVOTHYROXINE [Concomitant]
     Active Substance: LEVOTHYROXINE
     Dosage: FREQUENCY WAS NOT REPORTED
  4. BISOPROLOL [Concomitant]
     Active Substance: BISOPROLOL
     Dosage: FREQUENCY WAS NOT REPORTED
  5. BACLOFEN [Concomitant]
     Active Substance: BACLOFEN
     Dosage: FREQUENCY WAS NOT REPORTED
  6. DIAZEPAM [Concomitant]
     Active Substance: DIAZEPAM
     Dosage: FREQUENCY WAS NOT REPORTED

REACTIONS (4)
  - COVID-19 [Unknown]
  - Neurological decompensation [Recovering/Resolving]
  - Skin lesion [Recovered/Resolved]
  - Back pain [Recovered/Resolved]

NARRATIVE: CASE EVENT DATE: 20210801
